FAERS Safety Report 8874521 (Version 1)
Quarter: 2012Q4

REPORT INFORMATION
  Report Type: 
  Country: US (occurrence: US)
  Receive Date: 20121031
  Receipt Date: 20121031
  Transmission Date: 20130627
  Serious: No
  Sender: FDA-Public Use
  Company Number: US-BAYER-2012-110721

PATIENT
  Sex: Female

DRUGS (2)
  1. BEYAZ [Suspect]
     Dosage: UNK
  2. ADVIL [Concomitant]
     Indication: LOCALISED MUSCLE PAIN
     Dosage: UNK

REACTIONS (1)
  - Myalgia [None]
